FAERS Safety Report 16207602 (Version 1)
Quarter: 2019Q2

REPORT INFORMATION
  Report Type: Spontaneous
  Country: US (occurrence: US)
  Receive Date: 20190417
  Receipt Date: 20190417
  Transmission Date: 20190711
  Serious: No
  Sender: FDA-Public Use
  Company Number: US-PFIZER INC-2019162198

PATIENT
  Age: 32 Year
  Sex: Female

DRUGS (1)
  1. XELJANZ XR [Suspect]
     Active Substance: TOFACITINIB CITRATE
     Indication: RHEUMATOID ARTHRITIS
     Dosage: 11 MG, 1X/DAY
     Route: 048
     Dates: start: 20190307

REACTIONS (7)
  - Urinary tract infection [Unknown]
  - Pollakiuria [Unknown]
  - Urine odour abnormal [Unknown]
  - Nausea [Unknown]
  - Micturition urgency [Unknown]
  - Urine abnormality [Unknown]
  - Dysuria [Unknown]

NARRATIVE: CASE EVENT DATE: 20190404
